FAERS Safety Report 5680233-7 (Version None)
Quarter: 2008Q1

REPORT INFORMATION
  Report Type: 
  Country: None (occurrence: None)
  Receive Date: 20080326
  Receipt Date: 20080314
  Transmission Date: 20080703
  Serious: Yes (Hospitalization)
  Sender: FDA-Public Use
  Company Number: US-ELI_LILLY_AND_COMPANY-US200802003426

PATIENT
  Age: 55 Year
  Sex: Female

DRUGS (3)
  1. GEMZAR [Suspect]
     Indication: PANCREATIC CARCINOMA
     Dosage: OTHER; 1GM/M2
     Route: 042
     Dates: start: 20070207, end: 20070523
  2. NORVASC [Concomitant]
     Indication: HYPERTENSION
     Dosage: 5 MG, DAILY (1/D)
     Route: 048
  3. LANTUS [Concomitant]
     Route: 058

REACTIONS (2)
  - PNEUMONIA [None]
  - PULMONARY TOXICITY [None]
